FAERS Safety Report 13518322 (Version 1)
Quarter: 2017Q2

REPORT INFORMATION
  Report Type: Spontaneous
  Country: US (occurrence: US)
  Receive Date: 20170505
  Receipt Date: 20170505
  Transmission Date: 20170830
  Serious: Yes (Life-Threatening, Disabling)
  Sender: FDA-Public Use
  Company Number: None

PATIENT
  Age: 60 Year
  Sex: Female
  Weight: 85.5 kg

DRUGS (4)
  1. MULTI VITAMINS [Concomitant]
     Active Substance: VITAMINS
  2. ALEVE [Concomitant]
     Active Substance: NAPROXEN SODIUM
  3. LEVOFLOXACIN 750MG [Suspect]
     Active Substance: LEVOFLOXACIN
     Indication: BRONCHITIS
     Route: 048
     Dates: start: 20170204, end: 20170211
  4. ALLEGRA [Concomitant]
     Active Substance: FEXOFENADINE HYDROCHLORIDE

REACTIONS (4)
  - Arthralgia [None]
  - Dyspnoea [None]
  - Joint swelling [None]
  - Heart rate increased [None]

NARRATIVE: CASE EVENT DATE: 20170210
